FAERS Safety Report 10399236 (Version 1)
Quarter: 2014Q3

REPORT INFORMATION
  Report Type: Spontaneous
  Country: US (occurrence: None)
  Receive Date: 20140818
  Receipt Date: 20140818
  Transmission Date: 20150326
  Serious: Yes (Disabling)
  Sender: FDA-Public Use
  Company Number: None

PATIENT
  Age: 33 Year
  Sex: Female
  Weight: 54.43 kg

DRUGS (1)
  1. METRONIDAZOLE. [Suspect]
     Active Substance: METRONIDAZOLE
     Indication: BACTERIAL INFECTION
     Route: 048
     Dates: start: 20140508, end: 20140514

REACTIONS (15)
  - Muscular weakness [None]
  - Speech disorder [None]
  - Dyspnoea [None]
  - Choking [None]
  - Head discomfort [None]
  - Abasia [None]
  - Pulse pressure increased [None]
  - Asthenia [None]
  - Vision blurred [None]
  - Hallucination [None]
  - Abdominal pain [None]
  - Amnesia [None]
  - Hypoaesthesia [None]
  - Paranoia [None]
  - Tremor [None]

NARRATIVE: CASE EVENT DATE: 20140513
